FAERS Safety Report 9221565 (Version 1)
Quarter: 2013Q2

REPORT INFORMATION
  Report Type: Spontaneous
  Country: FR (occurrence: FR)
  Receive Date: 20130410
  Receipt Date: 20130410
  Transmission Date: 20140414
  Serious: Yes (Hospitalization, Other)
  Sender: FDA-Public Use
  Company Number: FR-AMGEN-FRASP2013024617

PATIENT
  Age: 74 Year
  Sex: Female

DRUGS (6)
  1. ENBREL [Suspect]
     Indication: RHEUMATOID ARTHRITIS
     Dosage: 50 MG, WEEKLY
     Route: 058
     Dates: start: 20121112, end: 20121217
  2. METHOTREXATE SODIUM [Suspect]
     Indication: RHEUMATOID ARTHRITIS
     Dosage: 15 MG, WEEKLY
     Route: 058
     Dates: start: 2009
  3. CORTANCYL [Suspect]
     Indication: RHEUMATOID ARTHRITIS
     Dosage: 7 MG, 1X/DAY
     Route: 048
     Dates: start: 2009
  4. LEVOTHYROX [Suspect]
     Indication: HYPOTHYROIDISM
     Dosage: 75 UG, 1X/DAY
     Route: 048
     Dates: start: 2002
  5. DIPHTHERIA,TETANUS AND POLIOMYELITIS VACCINE [Concomitant]
     Dosage: UNK
     Dates: start: 201211, end: 201211
  6. PNEUMOCOCCAL VACCINE [Concomitant]
     Dosage: UNK
     Dates: start: 201211, end: 201211

REACTIONS (2)
  - Extremity necrosis [Not Recovered/Not Resolved]
  - Cardiac disorder [Unknown]
